FAERS Safety Report 9717006 (Version 1)
Quarter: 2013Q4

REPORT INFORMATION
  Report Type: Spontaneous
  Country: US (occurrence: US)
  Receive Date: 20131127
  Receipt Date: 20131127
  Transmission Date: 20140711
  Serious: No
  Sender: FDA-Public Use
  Company Number: US-GILEAD-2009-0020308

PATIENT
  Sex: Female
  Weight: 79.38 kg

DRUGS (13)
  1. LETAIRIS [Suspect]
     Indication: PULMONARY ARTERIAL HYPERTENSION
     Route: 048
     Dates: start: 20090130
  2. METOPROLOL [Concomitant]
  3. LISINOPRIL [Concomitant]
  4. HUMALOG [Concomitant]
  5. LANTUS [Concomitant]
  6. ALBUTEROL [Concomitant]
  7. SYMBICORT [Concomitant]
  8. IPRATROPIUM [Concomitant]
  9. LIPITOR [Concomitant]
  10. PRISTIQ [Concomitant]
  11. LYRICA [Concomitant]
  12. METOCLOPRAMIDE [Concomitant]
  13. MULTIVITAMIN [Concomitant]

REACTIONS (1)
  - Anaemia [Unknown]
